FAERS Safety Report 25429180 (Version 1)
Quarter: 2025Q2

REPORT INFORMATION
  Report Type: Report from Study
  Country: GB (occurrence: GB)
  Receive Date: 20250612
  Receipt Date: 20250612
  Transmission Date: 20250716
  Serious: Yes (Hospitalization, Other)
  Sender: ABBVIE
  Company Number: GB-ABBVIE-6317833

PATIENT
  Age: 55 Year
  Sex: Female

DRUGS (1)
  1. SKYRIZI [Suspect]
     Active Substance: RISANKIZUMAB-RZAA
     Indication: Crohn^s disease
     Dosage: 1.00 EA, 360MG/2.4ML
     Route: 058

REACTIONS (4)
  - Sepsis [Unknown]
  - Gastric operation [Unknown]
  - Fatigue [Not Recovered/Not Resolved]
  - Abdominal injury [Unknown]

NARRATIVE: CASE EVENT DATE: 20250101
